FAERS Safety Report 9957748 (Version 1)
Quarter: 2014Q1

REPORT INFORMATION
  Report Type: Report from Study
  Country: US (occurrence: US)
  Receive Date: 20140304
  Receipt Date: 20140304
  Transmission Date: 20141002
  Serious: No
  Sender: FDA-Public Use
  Company Number: US-ABBVIE-13P-163-1091761-00

PATIENT
  Age: 68 Year
  Sex: Male
  Weight: 99.88 kg

DRUGS (10)
  1. HUMIRA [Suspect]
     Indication: CROHN^S DISEASE
     Route: 058
     Dates: start: 20130417, end: 20130417
  2. HUMIRA [Suspect]
     Indication: COLITIS ULCERATIVE
     Dates: start: 20130501, end: 20130501
  3. HUMIRA [Suspect]
     Route: 058
     Dates: start: 20130515
  4. METHOTREXATE [Concomitant]
     Indication: CROHN^S DISEASE
  5. METHOTREXATE [Concomitant]
     Indication: COLITIS ULCERATIVE
  6. ASACOL [Concomitant]
     Indication: CROHN^S DISEASE
  7. ASACOL [Concomitant]
     Indication: COLITIS ULCERATIVE
  8. HYDROCHLOROTHIAZIDE [Concomitant]
     Indication: HYPERTENSION
  9. LISINOPRIL [Concomitant]
     Indication: HYPERTENSION
  10. AMLODIPINE [Concomitant]
     Indication: HYPERTENSION

REACTIONS (1)
  - Drug ineffective [Not Recovered/Not Resolved]
